FAERS Safety Report 23854432 (Version 1)
Quarter: 2024Q2

REPORT INFORMATION
  Report Type: Report from Study
  Country: HN (occurrence: HN)
  Receive Date: 20240514
  Receipt Date: 20240514
  Transmission Date: 20240716
  Serious: Yes (Other)
  Sender: FDA-Public Use
  Company Number: HN-BAYER-2024A068782

PATIENT
  Sex: Female

DRUGS (5)
  1. EYLEA [Suspect]
     Active Substance: AFLIBERCEPT
     Indication: Neovascular age-related macular degeneration
     Dosage: 2 MG, 40 MG/ML, SOLUTION FOR INJECTION
     Route: 031
     Dates: start: 20230202, end: 20230202
  2. EYLEA [Suspect]
     Active Substance: AFLIBERCEPT
     Dosage: 2 MG, 40 MG/ML, SOLUTION FOR INJECTION
     Route: 031
     Dates: start: 20230503, end: 20230503
  3. EYLEA [Suspect]
     Active Substance: AFLIBERCEPT
     Dosage: 2 MG, 40 MG/ML, SOLUTION FOR INJECTION
     Route: 031
     Dates: start: 20230803, end: 20230803
  4. EYLEA [Suspect]
     Active Substance: AFLIBERCEPT
     Dosage: 2 MG, 40 MG/ML, SOLUTION FOR INJECTION
     Route: 031
     Dates: start: 20231222, end: 20231222
  5. EYLEA [Suspect]
     Active Substance: AFLIBERCEPT
     Dosage: 2 MG, 40 MG/ML, SOLUTION FOR INJECTION
     Route: 031
     Dates: start: 20240422

REACTIONS (3)
  - Blindness [Not Recovered/Not Resolved]
  - Cataract [Not Recovered/Not Resolved]
  - Inappropriate schedule of product administration [Unknown]

NARRATIVE: CASE EVENT DATE: 20240422
